FAERS Safety Report 11983463 (Version 1)
Quarter: 2016Q1

REPORT INFORMATION
  Report Type: Spontaneous
  Country: JP (occurrence: JP)
  Receive Date: 20160201
  Receipt Date: 20160201
  Transmission Date: 20160526
  Serious: Yes (Death)
  Sender: FDA-Public Use
  Company Number: JP-BIOCRYST PHARMACEUTICALS, INC.-2015BCR00029

PATIENT
  Age: 43 Year
  Sex: Male

DRUGS (1)
  1. RAPIACTA [Suspect]
     Active Substance: PERAMIVIR
     Indication: INFLUENZA
     Dosage: 300 MG, UNK
     Route: 042
     Dates: start: 20150128, end: 20150128

REACTIONS (2)
  - Hypoxic-ischaemic encephalopathy [Fatal]
  - Anaphylactoid shock [Fatal]

NARRATIVE: CASE EVENT DATE: 20150128
